FAERS Safety Report 5404966-2 (Version None)
Quarter: 2007Q3

REPORT INFORMATION
  Report Type: 
  Country: None (occurrence: None)
  Receive Date: 20070801
  Receipt Date: 20070723
  Transmission Date: 20080115
  Serious: Yes (Other)
  Sender: FDA-Public Use
  Company Number: 07H-163-0312922-00

PATIENT
  Age: 75 Year
  Sex: Female

DRUGS (2)
  1. HYDROMORPHONE HCL [Suspect]
     Indication: PROCEDURAL PAIN
     Dosage: 1 MG, EVERY 4  HOURS, INTRAVENOUS
     Route: 042
  2. MORPHINE [Concomitant]

REACTIONS (4)
  - ANAPHYLACTOID REACTION [None]
  - RESPIRATORY DISTRESS [None]
  - STRIDOR [None]
  - WHEEZING [None]
